FAERS Safety Report 18242714 (Version 1)
Quarter: 2020Q3

REPORT INFORMATION
  Report Type: Spontaneous
  Country: US (occurrence: US)
  Receive Date: 20200908
  Receipt Date: 20200908
  Transmission Date: 20201103
  Serious: Yes (Life-Threatening, Hospitalization, Disabling)
  Sender: FDA-Public Use
  Company Number: US-MYLANLABS-2020M1076032

PATIENT
  Age: 67 Year
  Sex: Male

DRUGS (5)
  1. CYCLOSPORINE. [Suspect]
     Active Substance: CYCLOSPORINE
     Indication: IMMUNOSUPPRESSANT DRUG THERAPY
     Route: 065
  2. TACROLIMUS. [Suspect]
     Active Substance: TACROLIMUS
     Indication: IMMUNOSUPPRESSANT DRUG THERAPY
     Dosage: UNK
     Route: 065
  3. PREDNISONE. [Concomitant]
     Active Substance: PREDNISONE
     Indication: IMMUNOSUPPRESSANT DRUG THERAPY
     Dosage: 30 MILLIGRAM, BID
     Route: 048
  4. EVEROLIMUS. [Concomitant]
     Active Substance: EVEROLIMUS
     Indication: IMMUNOSUPPRESSANT DRUG THERAPY
     Dosage: 1 MILLIGRAM, BID
     Route: 065
  5. APIXABAN [Concomitant]
     Active Substance: APIXABAN
     Indication: ATRIAL FIBRILLATION
     Route: 065

REACTIONS (15)
  - Ischaemia [Unknown]
  - Pneumonia pseudomonal [Unknown]
  - Skin ulcer [Not Recovered/Not Resolved]
  - Respiratory failure [Recovering/Resolving]
  - Pulmonary embolism [Unknown]
  - Cytomegalovirus infection [Unknown]
  - Thrombocytopenia [Recovered/Resolved]
  - Arterial stenosis [Unknown]
  - Vascular injury [Unknown]
  - Necrosis [Not Recovered/Not Resolved]
  - Haemorrhage [Unknown]
  - Thrombotic microangiopathy [Recovering/Resolving]
  - Acute kidney injury [Recovered/Resolved]
  - Subclavian vein thrombosis [Unknown]
  - Ulcer [Unknown]
